FAERS Safety Report 5148371-5 (Version None)
Quarter: 2006Q4

REPORT INFORMATION
  Report Type: 
  Country: None (occurrence: None)
  Receive Date: 20061106
  Receipt Date: 20061024
  Transmission Date: 20070319
  Serious: Yes (Hospitalization)
  Sender: FDA-Public Use
  Company Number: 2006130640

PATIENT
  Age: 60 Year
  Sex: Female

DRUGS (4)
  1. LIPITOR [Suspect]
     Indication: BLOOD CHOLESTEROL
     Dosage: (1 IN 1 D), ORAL
     Route: 048
     Dates: start: 20050301
  2. ANGIOTENSIN II ANTAGONISTS (ANGIOTENSIN II [Concomitant]
  3. ASPIRIN [Concomitant]
  4. EZETROL (EZETIMIBE) [Concomitant]

REACTIONS (1)
  - MYOCARDIAL INFARCTION [None]
